FAERS Safety Report 10935874 (Version 3)
Quarter: 2015Q3

REPORT INFORMATION
  Report Type: Spontaneous
  Country: US (occurrence: US)
  Receive Date: 20150320
  Receipt Date: 20150730
  Transmission Date: 20151125
  Serious: No
  Sender: FDA-Public Use
  Company Number: US-ASTRAZENECA-2015SE24159

PATIENT
  Age: 26157 Day
  Sex: Male
  Weight: 127 kg

DRUGS (7)
  1. BYDUREON [Suspect]
     Active Substance: EXENATIDE
     Indication: TYPE 2 DIABETES MELLITUS
     Route: 058
     Dates: start: 201406, end: 201502
  2. LIPITOR [Concomitant]
     Active Substance: ATORVASTATIN CALCIUM
     Indication: BLOOD CHOLESTEROL ABNORMAL
  3. BYDUREON [Suspect]
     Active Substance: EXENATIDE
     Indication: TYPE 2 DIABETES MELLITUS
     Route: 058
     Dates: start: 20140604, end: 20150303
  4. ALTACE [Concomitant]
     Active Substance: RAMIPRIL
     Indication: HYPERTENSION
  5. FISH OIL OTC [Concomitant]
  6. GLYBURIDE. [Concomitant]
     Active Substance: GLYBURIDE
     Indication: DIABETES MELLITUS
  7. GARLIC OTC [Concomitant]

REACTIONS (9)
  - Neuralgia [Unknown]
  - Sciatica [Not Recovered/Not Resolved]
  - Intentional product misuse [Unknown]
  - Pain in jaw [Unknown]
  - Underdose [Unknown]
  - Arthralgia [Unknown]
  - Tooth abscess [Unknown]
  - Injection site mass [Not Recovered/Not Resolved]
  - Blood glucose decreased [Unknown]

NARRATIVE: CASE EVENT DATE: 20140604
